FAERS Safety Report 25632700 (Version 2)
Quarter: 2025Q3

REPORT INFORMATION
  Report Type: Spontaneous
  Country: JP (occurrence: JP)
  Receive Date: 20250801
  Receipt Date: 20250808
  Transmission Date: 20251020
  Serious: Yes (Hospitalization)
  Sender: MACLEODS
  Company Number: JP-MACLEODS PHARMA-MAC2025054387

PATIENT

DRUGS (3)
  1. OLANZAPINE [Suspect]
     Active Substance: OLANZAPINE
     Indication: Schizophrenia
     Route: 048
  2. LEVOMEPROMAZINE [Concomitant]
     Active Substance: LEVOMEPROMAZINE
     Indication: Schizophrenia
     Route: 065
  3. NITRAZEPAM [Concomitant]
     Active Substance: NITRAZEPAM
     Route: 065

REACTIONS (14)
  - Diabetes mellitus [Recovered/Resolved]
  - Renal impairment [Recovered/Resolved]
  - Gait disturbance [Recovered/Resolved]
  - Fall [Recovered/Resolved]
  - Diabetic neuropathy [Unknown]
  - Contusion [Recovered/Resolved]
  - Bladder dysfunction [Unknown]
  - Urethritis [Recovered/Resolved]
  - Pyelitis [Recovered/Resolved]
  - Sepsis [Unknown]
  - Hypoaesthesia [Recovered/Resolved]
  - Pyelocaliectasis [Recovered/Resolved]
  - Diabetic ketoacidosis [Recovering/Resolving]
  - Urinary retention [Unknown]
